FAERS Safety Report 7725702-0 (Version None)
Quarter: 2011Q3

REPORT INFORMATION
  Report Type: 
  Country: None (occurrence: None)
  Receive Date: 20110902
  Receipt Date: 20110827
  Transmission Date: 20111222
  Serious: Yes (Death, Hospitalization)
  Sender: FDA-Public Use
  Company Number: PHHY2011MX76735

PATIENT
  Sex: Female

DRUGS (2)
  1. INSULIN [Concomitant]
     Dosage: 25 IU, UNK
  2. RASILEZ [Suspect]
     Indication: HYPERTENSION
     Dosage: 150 MG, UNK
     Route: 048
     Dates: start: 20100801, end: 20110805

REACTIONS (4)
  - DEATH [None]
  - BLOOD GLUCOSE DECREASED [None]
  - KIDNEY INFECTION [None]
  - BLOOD PRESSURE DECREASED [None]
